FAERS Safety Report 19603276 (Version 1)
Quarter: 2021Q3

REPORT INFORMATION
  Report Type: Report from Study
  Country: US (occurrence: US)
  Receive Date: 20210723
  Receipt Date: 20210723
  Transmission Date: 20211014
  Serious: Yes (Life-Threatening)
  Sender: FDA-Public Use
  Company Number: US-BAYER-2021-149344

PATIENT
  Age: 42 Year
  Sex: Female

DRUGS (1)
  1. ASPIRIN 325 MG [Suspect]
     Active Substance: ASPIRIN
     Dosage: 20 DF, ONCE
     Route: 048

REACTIONS (13)
  - Tinnitus [Recovering/Resolving]
  - Overdose [Recovering/Resolving]
  - Dyspnoea [Recovering/Resolving]
  - Hyperchloraemia [Recovering/Resolving]
  - Suicide attempt [Recovering/Resolving]
  - Toxicity to various agents [Recovering/Resolving]
  - Respiratory alkalosis [Recovering/Resolving]
  - Lethargy [Recovering/Resolving]
  - Tachypnoea [Recovering/Resolving]
  - Tachycardia [Recovering/Resolving]
  - Anion gap abnormal [Recovering/Resolving]
  - Metabolic acidosis [Recovering/Resolving]
  - Nausea [Recovering/Resolving]
